FAERS Safety Report 7621977-7 (Version None)
Quarter: 2011Q3

REPORT INFORMATION
  Report Type: 
  Country: None (occurrence: None)
  Receive Date: 20110720
  Receipt Date: 20110711
  Transmission Date: 20111222
  Serious: Yes (Other)
  Sender: FDA-Public Use
  Company Number: JP-BRISTOL-MYERS SQUIBB COMPANY-15892409

PATIENT
  Age: 58 Year
  Sex: Male

DRUGS (2)
  1. GEMCITABINE [Suspect]
     Indication: LUNG SQUAMOUS CELL CARCINOMA STAGE UNSPECIFIED
  2. CISPLATIN [Suspect]
     Indication: LUNG SQUAMOUS CELL CARCINOMA STAGE UNSPECIFIED

REACTIONS (3)
  - BRUGADA SYNDROME [None]
  - HYPERSENSITIVITY [None]
  - DRUG HYPERSENSITIVITY [None]
